FAERS Safety Report 7528753-4 (Version None)
Quarter: 2011Q2

REPORT INFORMATION
  Report Type: 
  Country: None (occurrence: None)
  Receive Date: 20110607
  Receipt Date: 20100811
  Transmission Date: 20111010
  Serious: No
  Sender: FDA-Public Use
  Company Number: US-ASTRAZENECA-2010SE38517

PATIENT
  Sex: Female

DRUGS (3)
  1. PRILOSEC OTC [Suspect]
     Route: 048
     Dates: start: 20100807, end: 20100807
  2. VITAMINS [Concomitant]
     Dosage: UNKNOWN
  3. ZANTAC [Suspect]
     Dosage: UNK DOSE, UNK FREQ FOR 1 DAY
     Route: 048
     Dates: start: 20100807, end: 20100807

REACTIONS (3)
  - RASH [None]
  - DRUG EXPOSURE DURING PREGNANCY [None]
  - PRURITUS [None]
